FAERS Safety Report 20705101 (Version 3)
Quarter: 2023Q4

REPORT INFORMATION
  Report Type: Spontaneous
  Country: TW (occurrence: TW)
  Receive Date: 20220413
  Receipt Date: 20231006
  Transmission Date: 20240110
  Serious: Yes (Death, Other)
  Sender: FDA-Public Use
  Company Number: TW-BAYER-2022A050961

PATIENT
  Age: 61 Year
  Sex: Female

DRUGS (2)
  1. ULTRAVIST [Suspect]
     Active Substance: IOPROMIDE
     Indication: Computerised tomogram abdomen
     Dosage: 100 ML, ONCE
     Route: 042
     Dates: start: 20220408, end: 20220408
  2. ULTRAVIST [Suspect]
     Active Substance: IOPROMIDE
     Indication: Renal neoplasm

REACTIONS (12)
  - Contrast media allergy [Fatal]
  - Acute pulmonary oedema [Fatal]
  - Laryngeal oedema [Fatal]
  - Laryngeal haemorrhage [None]
  - Discomfort [Fatal]
  - Hyperhidrosis [Fatal]
  - Loss of consciousness [Fatal]
  - Nausea [Fatal]
  - Retching [Fatal]
  - Unresponsive to stimuli [Fatal]
  - Skin discolouration [Fatal]
  - Dyspnoea [Fatal]

NARRATIVE: CASE EVENT DATE: 20220408
